FAERS Safety Report 10101156 (Version 2)
Quarter: 2014Q2

REPORT INFORMATION
  Report Type: Spontaneous
  Country: GB (occurrence: GB)
  Receive Date: 20140424
  Receipt Date: 20140424
  Transmission Date: 20141212
  Serious: Yes (Hospitalization)
  Sender: FDA-Public Use
  Company Number: GB-009507513-1404GBR003802

PATIENT
  Age: 24 Year
  Sex: Female
  Weight: 75.5 kg

DRUGS (1)
  1. NEXPLANON [Suspect]
     Dosage: UNK
     Route: 059
     Dates: start: 20140306

REACTIONS (2)
  - Liver function test abnormal [Recovering/Resolving]
  - Liver disorder [Recovering/Resolving]
